FAERS Safety Report 17010553 (Version 1)
Quarter: 2019Q4

REPORT INFORMATION
  Report Type: Report from Study
  Country: US (occurrence: US)
  Receive Date: 20191108
  Receipt Date: 20191108
  Transmission Date: 20200122
  Serious: Yes (Hospitalization)
  Sender: FDA-Public Use
  Company Number: US-BAYER-2019-201707

PATIENT
  Age: 62 Year
  Sex: Female

DRUGS (12)
  1. CYCLOBENZAPRINE. [Concomitant]
     Active Substance: CYCLOBENZAPRINE
  2. ATORVASTATIN [Concomitant]
     Active Substance: ATORVASTATIN
  3. DONEPEZIL. [Concomitant]
     Active Substance: DONEPEZIL
  4. PAROXETINE. [Concomitant]
     Active Substance: PAROXETINE
  5. OXYCOD [OXYCODONE HYDROCHLORIDE] [Concomitant]
  6. VESANOID [Concomitant]
     Active Substance: TRETINOIN
  7. BETASERON [Suspect]
     Active Substance: INTERFERON BETA-1B
     Indication: MULTIPLE SCLEROSIS
     Dosage: UNK, QOD 0.3MG PWD MIX 1 VIAL AND INJECT
     Route: 058
     Dates: start: 20180103
  8. OMEPRAZOLE. [Concomitant]
     Active Substance: OMEPRAZOLE
  9. TIZANIDINE. [Concomitant]
     Active Substance: TIZANIDINE
  10. BACLOFEN. [Concomitant]
     Active Substance: BACLOFEN
  11. GABAPENTIN. [Concomitant]
     Active Substance: GABAPENTIN
  12. LEVOTHYROXINE. [Concomitant]
     Active Substance: LEVOTHYROXINE

REACTIONS (2)
  - Spinal operation [Not Recovered/Not Resolved]
  - Product dose omission [None]

NARRATIVE: CASE EVENT DATE: 20191015
